FAERS Safety Report 25935196 (Version 2)
Quarter: 2025Q4

REPORT INFORMATION
  Report Type: Spontaneous
  Country: CO (occurrence: CO)
  Receive Date: 20251017
  Receipt Date: 20251029
  Transmission Date: 20260118
  Serious: Yes (Death, Hospitalization, Other)
  Sender: NOVO NORDISK
  Company Number: CO-NOVOPROD-1538704

PATIENT
  Age: 70 Year
  Sex: Female

DRUGS (2)
  1. SAXENDA [Suspect]
     Active Substance: LIRAGLUTIDE
     Dosage: 0.6 MG, QD(RESTARTED)
     Route: 058
     Dates: end: 20190201
  2. SAXENDA [Suspect]
     Active Substance: LIRAGLUTIDE
     Indication: Obesity
     Dosage: 3 MG, QD
     Route: 058
     Dates: start: 20181101

REACTIONS (7)
  - Vomiting [Fatal]
  - Diarrhoea [Fatal]
  - Abdominal pain [Fatal]
  - Abdominal rigidity [Fatal]
  - Gastrointestinal infection [Fatal]
  - Back pain [Fatal]
  - Product use issue [Recovered/Resolved]

NARRATIVE: CASE EVENT DATE: 20181101
